FAERS Safety Report 23078562 (Version 1)
Quarter: 2023Q4

REPORT INFORMATION
  Report Type: Report from Study
  Country: IT (occurrence: IT)
  Receive Date: 20231018
  Receipt Date: 20231018
  Transmission Date: 20240110
  Serious: Yes (Other)
  Sender: FDA-Public Use
  Company Number: IT-SANDOZ-SDZ2023IT040600

PATIENT
  Sex: Female

DRUGS (1)
  1. OMNITROPE [Suspect]
     Active Substance: SOMATROPIN
     Indication: Product used for unknown indication
     Dosage: 0.5 MG, QD ( 7/7 DAYS )
     Route: 065
     Dates: start: 20220927

REACTIONS (4)
  - Myocardial necrosis marker increased [Unknown]
  - Blood glucose abnormal [Unknown]
  - Headache [Unknown]
  - Arthralgia [Unknown]
